FAERS Safety Report 22242882 (Version 1)
Quarter: 2023Q2

REPORT INFORMATION
  Report Type: Spontaneous
  Country: US (occurrence: None)
  Receive Date: 20230424
  Receipt Date: 20230424
  Transmission Date: 20230722
  Serious: Yes (Other)
  Sender: FDA-Public Use
  Company Number: US-Axsome Therapeutics, Inc.-AXS202304-000501

PATIENT

DRUGS (1)
  1. AUVELITY [Suspect]
     Active Substance: BUPROPION HYDROCHLORIDE\DEXTROMETHORPHAN HYDROBROMIDE
     Indication: Product used for unknown indication
     Route: 065
     Dates: start: 202302

REACTIONS (5)
  - Schizophrenia [Unknown]
  - Seizure [Unknown]
  - Thinking abnormal [Unknown]
  - Mania [Unknown]
  - Delusion [Unknown]

NARRATIVE: CASE EVENT DATE: 20230201
